FAERS Safety Report 8286564-9 (Version None)
Quarter: 2012Q2

REPORT INFORMATION
  Report Type: 
  Country: None (occurrence: None)
  Receive Date: 20120411
  Receipt Date: 20120326
  Transmission Date: 20120825
  Serious: Yes (Hospitalization)
  Sender: FDA-Public Use
  Company Number: TCI2012A01572

PATIENT
  Age: 89 Year
  Sex: Female

DRUGS (10)
  1. MAGMITT (MAGNESIUM OXIDE) [Concomitant]
  2. FLURAZEPAM HYDROCHLORIDE [Suspect]
     Dosage: 10 MG (10 MG, 1 IN 1 D), PER ORAL
     Route: 048
     Dates: start: 20120106, end: 20120203
  3. ZOLPIDEM TARTRATE [Concomitant]
  4. ROZEREM [Suspect]
     Indication: SLEEP DISORDER
     Dosage: 8 MG (8 MG 1 IN 1 D), PER ORAL
     Route: 048
     Dates: start: 20111227, end: 20120207
  5. SEDIEL (TANDOSPIRONE CITRATE) [Suspect]
     Dosage: 20 MG (10 MG, 2 IN 1 D) PER ORAL; 30 MG (10 MG, 3 IN 1 D), PER ORAL
     Route: 048
     Dates: start: 20111229, end: 20120203
  6. SEDIEL (TANDOSPIRONE CITRATE) [Suspect]
     Dosage: 20 MG (10 MG, 2 IN 1 D) PER ORAL; 30 MG (10 MG, 3 IN 1 D), PER ORAL
     Route: 048
     Dates: start: 20111227, end: 20111228
  7. FUROSEMIDE [Concomitant]
  8. APATYA (ISOSORBIDE DINITRATE) [Concomitant]
  9. ALDACTONE [Concomitant]
  10. TRAZODONE HCL [Concomitant]

REACTIONS (6)
  - ASPARTATE AMINOTRANSFERASE INCREASED [None]
  - BLOOD ALKALINE PHOSPHATASE INCREASED [None]
  - HEPATIC FUNCTION ABNORMAL [None]
  - PYREXIA [None]
  - ALANINE AMINOTRANSFERASE INCREASED [None]
  - C-REACTIVE PROTEIN INCREASED [None]
